FAERS Safety Report 8394732-0 (Version None)
Quarter: 2012Q2

REPORT INFORMATION
  Report Type: 
  Country: None (occurrence: None)
  Receive Date: 20120525
  Receipt Date: 20120525
  Transmission Date: 20120825
  Serious: Yes (Life-Threatening, Hospitalization, Disabling)
  Sender: FDA-Public Use
  Company Number: None

PATIENT
  Age: 46 Year
  Sex: Female
  Weight: 59.8748 kg

DRUGS (1)
  1. CLINDAMYCIN [Suspect]
     Indication: TOOTH EXTRACTION
     Dosage: 1 X2 PO
     Route: 048
     Dates: start: 20091212, end: 20091222

REACTIONS (9)
  - DIARRHOEA [None]
  - NIGHTMARE [None]
  - BLOOD PRESSURE DECREASED [None]
  - CLOSTRIDIAL INFECTION [None]
  - PHOBIA [None]
  - FEAR [None]
  - INFLUENZA [None]
  - PYREXIA [None]
  - MALAISE [None]
